FAERS Safety Report 9096241 (Version 2)
Quarter: 2013Q1

REPORT INFORMATION
  Report Type: Spontaneous
  Country: US (occurrence: US)
  Receive Date: 20130207
  Receipt Date: 20130314
  Transmission Date: 20140127
  Serious: Yes (Death, Hospitalization)
  Sender: FDA-Public Use
  Company Number: US-ROCHE-1188048

PATIENT
  Age: 9 Year
  Sex: Female
  Weight: 18.2 kg

DRUGS (10)
  1. ZELBORAF [Suspect]
     Indication: NEOPLASM
     Route: 048
     Dates: end: 20130111
  2. GABAPENTIN [Concomitant]
     Indication: NEUROPATHY PERIPHERAL
     Route: 048
  3. LAMOTRIGIN [Concomitant]
     Indication: CONVULSION
     Route: 048
  4. KEPPRA [Concomitant]
     Indication: CONVULSION
     Dosage: 500MG/5ML
     Route: 048
  5. LEVOTHYROXINE [Concomitant]
     Indication: HYPOTHYROIDISM
     Route: 048
  6. MORPHINE SULFATE [Concomitant]
     Indication: PAIN
     Route: 048
  7. VINCRISTINE [Concomitant]
  8. CARBOPLATIN [Concomitant]
  9. TEMODAR [Concomitant]
  10. CELEBREX [Concomitant]

REACTIONS (6)
  - Neoplasm progression [Fatal]
  - Shunt infection [Fatal]
  - CNS ventriculitis [Fatal]
  - Cardiomyopathy [Fatal]
  - Cardiac failure [Fatal]
  - Convulsion [Unknown]
